FAERS Safety Report 24751459 (Version 3)
Quarter: 2025Q1

REPORT INFORMATION
  Report Type: Spontaneous
  Country: US (occurrence: US)
  Receive Date: 20241219
  Receipt Date: 20250115
  Transmission Date: 20250408
  Serious: Yes (Hospitalization, Other)
  Sender: NOVARTIS
  Company Number: US-002147023-NVSC2024US240769

PATIENT
  Age: 11 Year
  Sex: Male
  Weight: 32 kg

DRUGS (2)
  1. VIJOICE [Suspect]
     Active Substance: ALPELISIB
     Indication: PIK3CA related overgrowth spectrum
     Dosage: 125 MG, QD
     Route: 048
     Dates: start: 20240420, end: 20241207
  2. VIJOICE [Suspect]
     Active Substance: ALPELISIB
     Dosage: 50 MG, QD
     Route: 048
     Dates: start: 20241002

REACTIONS (8)
  - Haemorrhage [Recovered/Resolved]
  - Headache [Recovered/Resolved]
  - Gait disturbance [Unknown]
  - Subarachnoid haemorrhage [Unknown]
  - Hypertension [Unknown]
  - Intracranial pressure increased [Unknown]
  - Headache [Recovered/Resolved]
  - Migraine [Recovered/Resolved]

NARRATIVE: CASE EVENT DATE: 20241206
